FAERS Safety Report 6222218-8 (Version None)
Quarter: 2009Q2

REPORT INFORMATION
  Report Type: 
  Country: None (occurrence: None)
  Receive Date: 20090611
  Receipt Date: 20090602
  Transmission Date: 20091009
  Serious: Yes (Hospitalization, Other)
  Sender: FDA-Public Use
  Company Number: PHHY2009FR17277

PATIENT
  Age: 83 Year
  Sex: Female

DRUGS (7)
  1. LEPONEX [Suspect]
     Dosage: 25 MG/DAILY
  2. PERINDOPRIL ERBUMINE [Suspect]
     Dosage: 2 MG, DAILY
  3. IMOVANE [Suspect]
     Dosage: 0.5 DF DAILY
  4. REMINYL [Suspect]
     Dosage: 24 MG/DAILY
     Dates: end: 20090331
  5. MODOPAR [Suspect]
     Dosage: 1 DF, TID
  6. PARACETAMOL [Concomitant]
  7. CERIS [Concomitant]

REACTIONS (5)
  - ARTHRALGIA [None]
  - BALANCE DISORDER [None]
  - DIZZINESS [None]
  - FALL [None]
  - ORTHOSTATIC HYPOTENSION [None]
